FAERS Safety Report 9664653 (Version 1)
Quarter: 2013Q4

REPORT INFORMATION
  Report Type: Report from Study
  Country: US (occurrence: US)
  Receive Date: 20131101
  Receipt Date: 20131101
  Transmission Date: 20140711
  Serious: Yes (Hospitalization, Other)
  Sender: FDA-Public Use
  Company Number: US-ABBVIE-13P-163-1161912-00

PATIENT
  Age: 80 Year
  Sex: Female

DRUGS (11)
  1. HUMIRA [Suspect]
     Indication: PSORIASIS
     Dates: start: 20130731
  2. ASPIRIN [Concomitant]
     Indication: PROPHYLAXIS
     Dosage: FULL STRENGTH, DAILY
  3. ZETIA [Concomitant]
     Indication: BLOOD CHOLESTEROL
     Dosage: DAILY
  4. ZETIA [Concomitant]
     Indication: PROPHYLAXIS
  5. PRAVASTATIN [Concomitant]
     Indication: BLOOD CHOLESTEROL
     Dosage: DAILY
  6. PRAVASTATIN [Concomitant]
     Indication: PROPHYLAXIS
  7. LEVOTHYROXINE [Concomitant]
     Indication: PRODUCT USED FOR UNKNOWN INDICATION
     Dosage: DAILY
  8. EFFEXOR [Concomitant]
     Indication: DEPRESSION
  9. UNKNOWN BLOOD PRESSURE MEDICATION [Concomitant]
     Indication: BLOOD PRESSURE ABNORMAL
  10. GABAPENTIN [Concomitant]
     Indication: RESTLESS LEGS SYNDROME
     Dosage: 2 IN THE MORNING AND 2 IN THE EVENING
  11. MIRALAX [Concomitant]
     Indication: CONSTIPATION
     Dosage: DAILY

REACTIONS (5)
  - Hypotension [Not Recovered/Not Resolved]
  - Fatigue [Not Recovered/Not Resolved]
  - Palpitations [Unknown]
  - Blood iron decreased [Not Recovered/Not Resolved]
  - Drug effect delayed [Unknown]
